FAERS Safety Report 5269121-8 (Version None)
Quarter: 2007Q1

REPORT INFORMATION
  Report Type: 
  Country: None (occurrence: None)
  Receive Date: 20061213
  Receipt Date: 20030721
  Transmission Date: 20070707
  Serious: Yes (Other)
  Sender: FDA-Public Use
  Company Number: 2003UW09244

PATIENT
  Age: 78 Year
  Sex: Female
  Weight: 70.3075 kg

DRUGS (1)
  1. IRESSA [Suspect]

REACTIONS (4)
  - ANXIETY [None]
  - DRY SKIN [None]
  - RASH [None]
  - RESTLESSNESS [None]
